FAERS Safety Report 12122337 (Version 9)
Quarter: 2016Q4

REPORT INFORMATION
  Report Type: Report from Study
  Country: IT (occurrence: IT)
  Receive Date: 20160226
  Receipt Date: 20161020
  Transmission Date: 20170206
  Serious: Yes (Death, Life-Threatening)
  Sender: FDA-Public Use
  Company Number: PHHY2016IT025472

PATIENT
  Age: 57 Year
  Sex: Female

DRUGS (1)
  1. GILENYA [Suspect]
     Active Substance: FINGOLIMOD HYDROCHLORIDE
     Indication: RELAPSING-REMITTING MULTIPLE SCLEROSIS
     Dosage: 0.5 MG, QD
     Route: 048
     Dates: start: 20140603, end: 20160109

REACTIONS (4)
  - Metastases to large intestine [Fatal]
  - Anal squamous cell carcinoma [Fatal]
  - Haemorrhoids [Fatal]
  - Metastases to lung [Fatal]

NARRATIVE: CASE EVENT DATE: 20160120
